FAERS Safety Report 20439887 (Version 1)
Quarter: 2022Q1

REPORT INFORMATION
  Report Type: Spontaneous
  Country: US (occurrence: US)
  Receive Date: 20220207
  Receipt Date: 20220207
  Transmission Date: 20220423
  Serious: Yes (Death)
  Sender: FDA-Public Use
  Company Number: US-ELI_LILLY_AND_COMPANY-US202202001703

PATIENT
  Age: 34 Year
  Sex: Male

DRUGS (1)
  1. TALTZ [Suspect]
     Active Substance: IXEKIZUMAB
     Indication: Erythrodermic psoriasis
     Dosage: 80 MG, UNKNOWN
     Route: 058

REACTIONS (1)
  - Cardiomegaly [Fatal]

NARRATIVE: CASE EVENT DATE: 20210601
